FAERS Safety Report 5081315-3 (Version None)
Quarter: 2006Q3

REPORT INFORMATION
  Report Type: 
  Country: None (occurrence: None)
  Receive Date: 20060814
  Receipt Date: 20060814
  Transmission Date: 20061208
  Serious: Yes (Other)
  Sender: FDA-Public Use
  Company Number: None

PATIENT
  Age: 39 Year
  Sex: Female
  Weight: 88.4514 kg

DRUGS (1)
  1. AMBIEN [Suspect]
     Indication: INSOMNIA
     Dosage: 10 MG 1@ BEDTIME PO
     Route: 048
     Dates: start: 20060101, end: 20060220

REACTIONS (3)
  - ABNORMAL BEHAVIOUR [None]
  - AMNESIA [None]
  - SPEECH DISORDER [None]
